FAERS Safety Report 10421300 (Version 1)
Quarter: 2014Q3

REPORT INFORMATION
  Report Type: Spontaneous
  Country: US (occurrence: US)
  Receive Date: 20140831
  Receipt Date: 20140831
  Transmission Date: 20150326
  Serious: Yes (Death)
  Sender: FDA-Public Use
  Company Number: US-JNJFOC-20140824312

PATIENT
  Sex: Male

DRUGS (3)
  1. PRECISE EXTRA STRENGTH PAIN RELIEVING CREAM [Suspect]
     Active Substance: MENTHOL\METHYL SALICYLATE
     Indication: BONE CANCER
     Route: 065
  2. ALL OTHER THERAPEUTIC PRODUCT [Concomitant]
     Active Substance: UNSPECIFIED INGREDIENT
     Indication: BONE CANCER
     Route: 048
  3. ALL OTHER THERAPEUTIC PRODUCT [Concomitant]
     Active Substance: UNSPECIFIED INGREDIENT
     Indication: BONE CANCER
     Route: 042

REACTIONS (2)
  - Death [Fatal]
  - Off label use [Unknown]
